APPROVED DRUG PRODUCT: ACETAZOLAMIDE
Active Ingredient: ACETAZOLAMIDE
Strength: 125MG
Dosage Form/Route: TABLET;ORAL
Application: A212089 | Product #001 | TE Code: AB
Applicant: AUROBINDO PHARMA LTD
Approved: May 30, 2025 | RLD: No | RS: No | Type: RX